FAERS Safety Report 9192244 (Version 1)
Quarter: 2013Q1

REPORT INFORMATION
  Report Type: Spontaneous
  Country: ZA (occurrence: ZA)
  Receive Date: 20130327
  Receipt Date: 20130327
  Transmission Date: 20140127
  Serious: Yes (Hospitalization)
  Sender: FDA-Public Use
  Company Number: ZA-SANOFI-AVENTIS-200611465GDDC

PATIENT
  Age: 59 Year
  Sex: Male
  Weight: 91 kg

DRUGS (7)
  1. INSULIN GLARGINE [Suspect]
     Indication: TYPE 2 DIABETES MELLITUS
     Route: 058
     Dates: start: 200509
  2. CODIOVAN [Concomitant]
     Indication: HYPERTENSION
     Route: 048
     Dates: start: 1999
  3. PLENDIL [Concomitant]
     Indication: HYPERTENSION
     Route: 048
     Dates: start: 2000
  4. ZOCOR ^MSD^ [Concomitant]
     Indication: HYPERCHOLESTEROLAEMIA
     Route: 048
     Dates: start: 1999
  5. ECOTRIN [Concomitant]
     Route: 048
     Dates: start: 1999
  6. ZYLOPRIM [Concomitant]
     Indication: HYPERURICAEMIA
     Route: 048
     Dates: start: 1999
  7. PLAVIX [Concomitant]
     Dosage: DOSE AS USED: UNK

REACTIONS (2)
  - Anaemia [Recovering/Resolving]
  - Pyrexia [Recovering/Resolving]
